FAERS Safety Report 10079326 (Version 2)
Quarter: 2014Q2

REPORT INFORMATION
  Report Type: Report from Study
  Country: US (occurrence: KR)
  Receive Date: 20140415
  Receipt Date: 20140417
  Transmission Date: 20141212
  Serious: Yes (Death, Hospitalization, Other)
  Sender: FDA-Public Use
  Company Number: KR-FRI-1000066389

PATIENT
  Age: 76 Year
  Sex: Female
  Weight: 44.5 kg

DRUGS (8)
  1. ROFLUMILAST [Suspect]
     Indication: CHRONIC OBSTRUCTIVE PULMONARY DISEASE
     Dosage: 500 MCG
     Route: 048
     Dates: start: 20130601, end: 20140124
  2. ONBREZ [Concomitant]
     Dates: start: 20130820, end: 20140124
  3. SPIRIVA [Concomitant]
     Dates: start: 20080129, end: 20130819
  4. MUTERAN [Concomitant]
     Dates: start: 20140217, end: 20140319
  5. SOLONDO [Concomitant]
     Dates: start: 20131028, end: 20140319
  6. CORDARONE [Concomitant]
     Dates: start: 20140117, end: 20140306
  7. KUFARIN [Concomitant]
     Dates: start: 20130930, end: 20140124
  8. HERBEN [Concomitant]
     Dates: start: 20130516, end: 20140319

REACTIONS (3)
  - Cardiac arrest [Fatal]
  - Chronic obstructive pulmonary disease [Not Recovered/Not Resolved]
  - Brain injury [Fatal]
